FAERS Safety Report 4807802-8 (Version None)
Quarter: 2005Q4

REPORT INFORMATION
  Report Type: 
  Country: None (occurrence: None)
  Receive Date: 20051024
  Receipt Date: 20051014
  Transmission Date: 20060501
  Serious: Yes (Congenital Anomaly)
  Sender: FDA-Public Use
  Company Number: GB-ABBOTT-05P-167-0313976-00

PATIENT
  Age: 0 Day
  Sex: Female

DRUGS (2)
  1. VALPROATE SODIUM [Suspect]
     Indication: DRUG EXPOSURE DURING PREGNANCY
  2. TOPIRAMATE [Suspect]
     Indication: DRUG EXPOSURE DURING PREGNANCY

REACTIONS (5)
  - CLEFT PALATE [None]
  - CONGENITAL ANOMALY [None]
  - DRUG EXPOSURE DURING PREGNANCY [None]
  - FOETAL VALPROATE SYNDROME [None]
  - TOE DEFORMITY [None]
